FAERS Safety Report 8114186 (Version 4)
Quarter: 2012Q4

REPORT INFORMATION
  Report Type: 
  Country: JP (occurrence: JP)
  Receive Date: 20110831
  Receipt Date: 20121025
  Transmission Date: 20130627
  Serious: Yes (Hospitalization, Other)
  Sender: FDA-Public Use
  Company Number: JP-PFIZER INC-2011194548

PATIENT
  Age: 42 Year
  Sex: Female
  Weight: 45 kg

DRUGS (3)
  1. AZULFIDINE EN [Suspect]
     Indication: SPONDYLITIS
     Dosage: 500 mg, 1x/day
     Route: 048
     Dates: start: 20110714, end: 20110818
  2. ZANTAC [Concomitant]
     Dosage: 150 mg, 2x/day
     Dates: start: 20110518
  3. LOXONIN [Concomitant]
     Indication: PAIN
     Dosage: 60 mg, as needed
     Dates: start: 20110518

REACTIONS (5)
  - Hepatic function abnormal [Recovering/Resolving]
  - Pyrexia [Recovering/Resolving]
  - Listless [Recovering/Resolving]
  - Urticaria [Recovering/Resolving]
  - Drug eruption [Unknown]
